FAERS Safety Report 5585560-X (Version None)
Quarter: 2008Q1

REPORT INFORMATION
  Report Type: 
  Country: None (occurrence: None)
  Receive Date: 20080109
  Receipt Date: 20080103
  Transmission Date: 20080703
  Serious: Yes (Other)
  Sender: FDA-Public Use
  Company Number: B0361110A

PATIENT
  Age: 28 Year
  Sex: Female

DRUGS (8)
  1. PAROXETINE HYDROCHLORIDE [Suspect]
     Route: 065
     Dates: start: 19960108
  2. PAROXETINE HYDROCHLORIDE [Suspect]
     Route: 065
  3. FLUOXETINE HCL [Concomitant]
     Route: 065
  4. LEVOTHYROXINE SODIUM [Concomitant]
     Indication: HYPOTHYROIDISM
     Route: 065
  5. TRAZODONE HYDROCHLORIDE [Concomitant]
     Route: 065
     Dates: start: 20050124
  6. CLOMIPRAMINE HCL [Concomitant]
     Dates: start: 19960313
  7. PROZAC [Concomitant]
     Dates: start: 19970822
  8. DIAZEPAM [Concomitant]
     Dates: start: 20000614

REACTIONS (17)
  - DISTURBANCE IN ATTENTION [None]
  - DIZZINESS [None]
  - EMOTIONAL DISORDER [None]
  - HYPERHIDROSIS [None]
  - HYPOTHYROIDISM [None]
  - INSOMNIA [None]
  - MEMORY IMPAIRMENT [None]
  - MOOD ALTERED [None]
  - PARAESTHESIA [None]
  - PRURITUS [None]
  - SUICIDAL IDEATION [None]
  - TEARFULNESS [None]
  - TREMOR [None]
  - URTICARIA [None]
  - VOMITING [None]
  - WEIGHT INCREASED [None]
  - WITHDRAWAL SYNDROME [None]
